FAERS Safety Report 8683334 (Version 3)
Quarter: 2013Q4

REPORT INFORMATION
  Report Type: Report from Study
  Country: US (occurrence: US)
  Receive Date: 20120726
  Receipt Date: 20131031
  Transmission Date: 20140711
  Serious: Yes (Hospitalization)
  Sender: FDA-Public Use
  Company Number: US-009507513-1207USA008373

PATIENT
  Age: 58 Year
  Sex: Female

DRUGS (12)
  1. VORINOSTAT [Suspect]
     Indication: GLIOBLASTOMA MULTIFORME
     Dosage: 200 MG, BID
     Route: 048
     Dates: start: 20120703, end: 20120709
  2. VORINOSTAT [Suspect]
     Dosage: 200 UNK, UNK
     Route: 048
     Dates: start: 20120807, end: 20120812
  3. TEMOZOLOMIDE [Suspect]
     Indication: GLIOBLASTOMA MULTIFORME
     Dosage: 150 MG/M2, QD
     Route: 048
     Dates: start: 20120703, end: 20120709
  4. TEMOZOLOMIDE [Suspect]
     Dosage: 100 MG/M2, 7 DAYS ON/7 DAYS OFF
     Route: 048
     Dates: start: 20120807, end: 20120812
  5. ERLOTINIB HYDROCHLORIDE [Suspect]
     Indication: GLIOBLASTOMA MULTIFORME
     Dosage: 200 MG, QD
     Route: 048
     Dates: start: 20120703, end: 20120713
  6. ERLOTINIB HYDROCHLORIDE [Suspect]
     Dosage: 150 MG, DAILY 3 WEEKS ON, 1WEEK OFF
     Route: 048
     Dates: start: 20120807, end: 20120812
  7. AMLODIPINE [Concomitant]
     Dosage: 5 MG, QD
  8. METOPROLOL [Concomitant]
     Dosage: 25 MG, BID
  9. OMEPRAZOLE [Concomitant]
     Dosage: 40 MG, QD
  10. ZOFRAN [Concomitant]
     Dosage: 8 MG, PRN
  11. DEXAMETHASONE [Concomitant]
     Dosage: 4 MG, UNK
  12. LOMOTIL [Concomitant]
     Dosage: 2.5 MG, PRN

REACTIONS (11)
  - Urinary tract infection [Recovering/Resolving]
  - Diarrhoea [Recovering/Resolving]
  - Dehydration [Recovering/Resolving]
  - Fatigue [Recovering/Resolving]
  - Muscular weakness [Recovering/Resolving]
  - Lung infiltration [Unknown]
  - Cerebral ischaemia [Unknown]
  - Neutropenia [Unknown]
  - Pneumonitis [Unknown]
  - Thrombocytopenia [Unknown]
  - Haemoglobin decreased [Unknown]
